FAERS Safety Report 21382188 (Version 1)
Quarter: 2022Q3

REPORT INFORMATION
  Report Type: 
  Country: US (occurrence: US)
  Receive Date: 20220927
  Receipt Date: 20220927
  Transmission Date: 20221026
  Serious: No
  Sender: FDA-Public Use
  Company Number: US-C B Fleet Co Inc-202112-US-004106

PATIENT
  Sex: Female

DRUGS (1)
  1. MONISTAT 1 COMBINATION PACK [Suspect]
     Active Substance: MICONAZOLE NITRATE
     Indication: Fungal infection
     Dosage: THIS IS THE FIRST TIME THAT I HAVE USED THE PRODUCT.

REACTIONS (5)
  - Vulvovaginal burning sensation [Not Recovered/Not Resolved]
  - Vulvovaginal pruritus [Recovered/Resolved]
  - Chemical burn of genitalia [Unknown]
  - Vulvovaginal pain [Unknown]
  - Skin exfoliation [Unknown]
